FAERS Safety Report 7080486-7 (Version None)
Quarter: 2010Q4

REPORT INFORMATION
  Report Type: 
  Country: None (occurrence: None)
  Receive Date: 20101103
  Receipt Date: 20101022
  Transmission Date: 20110411
  Serious: Yes (Other)
  Sender: FDA-Public Use
  Company Number: DE-BAYER-200925651GPV

PATIENT
  Age: 46 Year
  Sex: Female

DRUGS (1)
  1. SORAFENIB [Suspect]
     Indication: ACUTE MYELOID LEUKAEMIA
     Dosage: TOTAL DAILY DOSE: 800 MG
     Route: 048

REACTIONS (3)
  - DRUG RESISTANCE [None]
  - GRAFT VERSUS HOST DISEASE [None]
  - RASH MACULO-PAPULAR [None]
